FAERS Safety Report 9032596 (Version 2)
Quarter: 2013Q2

REPORT INFORMATION
  Report Type: Spontaneous
  Country: DE (occurrence: DE)
  Receive Date: 20130122
  Receipt Date: 20130418
  Transmission Date: 20140414
  Serious: Yes (Hospitalization)
  Sender: FDA-Public Use
  Company Number: PHHY2013DE005330

PATIENT
  Age: 61 Year
  Sex: Female
  Weight: 56 kg

DRUGS (2)
  1. GLIVEC [Suspect]
     Indication: GASTROINTESTINAL STROMAL TUMOUR
     Dosage: 400 MG, DAILY
     Route: 048
     Dates: start: 201208, end: 20130117
  2. PANTOPRAZOLE [Concomitant]
     Dosage: 40 MG, DAILY
     Route: 048

REACTIONS (4)
  - Organising pneumonia [Recovering/Resolving]
  - Pulmonary fibrosis [Recovering/Resolving]
  - Dyspnoea [Unknown]
  - PO2 decreased [Unknown]
